FAERS Safety Report 16441855 (Version 1)
Quarter: 2019Q2

REPORT INFORMATION
  Report Type: Report from Study
  Country: None (occurrence: US)
  Receive Date: 20190617
  Receipt Date: 20190617
  Transmission Date: 20190711
  Serious: No
  Sender: FDA-Public Use
  Company Number: US-US WORLDMEDS, LLC-USW201808-001240

PATIENT
  Sex: Male

DRUGS (4)
  1. APOKYN [Suspect]
     Active Substance: APOMORPHINE HYDROCHLORIDE
     Indication: PARKINSON^S DISEASE
     Dates: start: 201510
  2. RYTARY [Concomitant]
     Active Substance: CARBIDOPA\LEVODOPA
  3. APOKYN [Suspect]
     Active Substance: APOMORPHINE HYDROCHLORIDE
  4. AZILECT [Concomitant]
     Active Substance: RASAGILINE MESYLATE

REACTIONS (4)
  - Yawning [Recovered/Resolved]
  - On and off phenomenon [Unknown]
  - Nausea [Recovered/Resolved]
  - Hiccups [Recovered/Resolved]
